FAERS Safety Report 17233275 (Version 2)
Quarter: 2024Q2

REPORT INFORMATION
  Report Type: Spontaneous
  Country: DE (occurrence: DE)
  Receive Date: 20200104
  Receipt Date: 20240401
  Transmission Date: 20240716
  Serious: Yes (Other)
  Sender: FDA-Public Use
  Company Number: DE-DESITIN-2019-02494

PATIENT
  Age: 64 Year
  Sex: Male

DRUGS (25)
  1. GABAPENTIN [Suspect]
     Active Substance: GABAPENTIN
     Indication: Generalised tonic-clonic seizure
     Dosage: UNK
     Route: 065
  2. GABAPENTIN [Suspect]
     Active Substance: GABAPENTIN
     Indication: Automatism epileptic
  3. GABAPENTIN [Suspect]
     Active Substance: GABAPENTIN
     Indication: Aura
  4. LACOSAMIDE [Suspect]
     Active Substance: LACOSAMIDE
     Indication: Aura
     Dosage: UNK
     Route: 065
  5. LACOSAMIDE [Suspect]
     Active Substance: LACOSAMIDE
     Indication: Generalised tonic-clonic seizure
  6. LACOSAMIDE [Suspect]
     Active Substance: LACOSAMIDE
     Indication: Automatism epileptic
  7. LAMOTRIGINE [Suspect]
     Active Substance: LAMOTRIGINE
     Indication: Generalised tonic-clonic seizure
     Dosage: 900 MILLIGRAM, ONCE A DAY
     Route: 065
  8. LAMOTRIGINE [Suspect]
     Active Substance: LAMOTRIGINE
     Indication: Automatism epileptic
  9. LAMOTRIGINE [Suspect]
     Active Substance: LAMOTRIGINE
     Indication: Aura
  10. LEVETIRACETAM [Suspect]
     Active Substance: LEVETIRACETAM
     Indication: Aura
     Dosage: 3000 MILLIGRAM, ONCE A DAY
     Route: 065
  11. LEVETIRACETAM [Suspect]
     Active Substance: LEVETIRACETAM
     Indication: Automatism epileptic
  12. LEVETIRACETAM [Suspect]
     Active Substance: LEVETIRACETAM
     Indication: Generalised tonic-clonic seizure
  13. OLANZAPINE [Suspect]
     Active Substance: OLANZAPINE
     Indication: Product used for unknown indication
     Dosage: UNK
     Route: 065
  14. ZONISAMIDE [Suspect]
     Active Substance: ZONISAMIDE
     Indication: Automatism epileptic
     Dosage: UNK
     Route: 065
  15. ZONISAMIDE [Suspect]
     Active Substance: ZONISAMIDE
     Indication: Generalised tonic-clonic seizure
  16. ZONISAMIDE [Suspect]
     Active Substance: ZONISAMIDE
     Indication: Aura
  17. OXCARBAZEPINE [Suspect]
     Active Substance: OXCARBAZEPINE
     Indication: Aura
     Dosage: UNK
     Route: 065
  18. OXCARBAZEPINE [Suspect]
     Active Substance: OXCARBAZEPINE
     Indication: Automatism epileptic
  19. OXCARBAZEPINE [Suspect]
     Active Substance: OXCARBAZEPINE
     Indication: Generalised tonic-clonic seizure
  20. PRIMIDONE [Suspect]
     Active Substance: PRIMIDONE
     Indication: Aura
     Dosage: UNK
     Route: 065
  21. PRIMIDONE [Suspect]
     Active Substance: PRIMIDONE
     Indication: Automatism epileptic
  22. PRIMIDONE [Suspect]
     Active Substance: PRIMIDONE
     Indication: Generalised tonic-clonic seizure
  23. VALPROATE [Suspect]
     Active Substance: VALPROIC ACID
     Indication: Automatism epileptic
     Dosage: UNK
     Route: 065
  24. VALPROATE [Suspect]
     Active Substance: VALPROIC ACID
     Indication: Aura
  25. VALPROATE [Suspect]
     Active Substance: VALPROIC ACID
     Indication: Generalised tonic-clonic seizure

REACTIONS (5)
  - Psychotic symptom [Recovered/Resolved]
  - Therapeutic product effect incomplete [Recovered/Resolved]
  - Depressive symptom [Recovered/Resolved]
  - Delusion [Recovered/Resolved]
  - Drug ineffective [Unknown]
